FAERS Safety Report 10955549 (Version 2)
Quarter: 2015Q4

REPORT INFORMATION
  Report Type: Report from Study
  Country: US (occurrence: US)
  Receive Date: 20150326
  Receipt Date: 20151102
  Transmission Date: 20160304
  Serious: Yes (Hospitalization)
  Sender: FDA-Public Use
  Company Number: US-BIOGENIDEC-2015BI036109

PATIENT
  Age: 66 Year
  Sex: Female

DRUGS (2)
  1. AVONEX [Suspect]
     Active Substance: INTERFERON BETA-1A
     Indication: MULTIPLE SCLEROSIS
     Route: 030
     Dates: start: 19990101
  2. AVONEX [Suspect]
     Active Substance: INTERFERON BETA-1A
     Indication: MULTIPLE SCLEROSIS
     Route: 030
     Dates: start: 20030328, end: 20140912

REACTIONS (7)
  - Multi-organ failure [Recovered/Resolved]
  - Multiple sclerosis relapse [Recovered/Resolved]
  - Drug intolerance [Not Recovered/Not Resolved]
  - Adverse drug reaction [Recovered/Resolved]
  - Hepatic failure [Recovered/Resolved]
  - Drug ineffective [Not Recovered/Not Resolved]
  - Pancreatic disorder [Recovered/Resolved]

NARRATIVE: CASE EVENT DATE: 201306
